FAERS Safety Report 16287977 (Version 2)
Quarter: 2019Q3

REPORT INFORMATION
  Report Type: Report from Study
  Country: US (occurrence: US)
  Receive Date: 20190508
  Receipt Date: 20190729
  Transmission Date: 20191004
  Serious: No
  Sender: FDA-Public Use
  Company Number: PHEH2019US019365

PATIENT
  Sex: Female

DRUGS (2)
  1. GILENYA [Suspect]
     Active Substance: FINGOLIMOD HYDROCHLORIDE
     Dosage: 0.5 MG, QD
     Route: 048
     Dates: start: 20180416
  2. GILENYA [Suspect]
     Active Substance: FINGOLIMOD HYDROCHLORIDE
     Indication: MULTIPLE SCLEROSIS
     Dosage: UNK UNK, QD
     Route: 048
     Dates: start: 20161104

REACTIONS (5)
  - Hypoaesthesia [Unknown]
  - Paraesthesia [Unknown]
  - Feeling abnormal [Unknown]
  - Neuralgia [Unknown]
  - Fatigue [Unknown]
